FAERS Safety Report 6516396-0 (Version None)
Quarter: 2009Q4

REPORT INFORMATION
  Report Type: 
  Country: None (occurrence: None)
  Receive Date: 20091223
  Receipt Date: 20091218
  Transmission Date: 20100525
  Serious: Yes (Other)
  Sender: FDA-Public Use
  Company Number: B0599664A

PATIENT
  Age: 45 Year
  Sex: Male

DRUGS (6)
  1. PAXIL [Suspect]
     Indication: DEPRESSION
     Dosage: 10MG PER DAY
     Route: 048
     Dates: start: 20091017, end: 20091021
  2. DOGMATYL [Concomitant]
     Route: 065
  3. ZOLOFT [Concomitant]
     Indication: DEPRESSION
     Route: 065
     Dates: start: 20091022, end: 20091031
  4. CONTOMIN [Concomitant]
     Route: 048
     Dates: start: 20091031, end: 20091102
  5. SOLANAX [Concomitant]
     Indication: DEPRESSION
     Route: 048
     Dates: start: 20091114
  6. FLUVOXAMINE MALEATE [Concomitant]
     Route: 048

REACTIONS (2)
  - INSOMNIA [None]
  - SUICIDAL IDEATION [None]
